FAERS Safety Report 25514704 (Version 1)
Quarter: 2025Q3

REPORT INFORMATION
  Report Type: Spontaneous
  Country: US (occurrence: US)
  Receive Date: 20250703
  Receipt Date: 20250703
  Transmission Date: 20251021
  Serious: No
  Sender: RADIUS PHARM
  Company Number: US-RADIUS HEALTH INC.-2025US000782

PATIENT
  Sex: Male

DRUGS (2)
  1. TYMLOS [Suspect]
     Active Substance: ABALOPARATIDE
     Indication: Bone loss
     Route: 058
     Dates: start: 20250117, end: 20250117
  2. TYMLOS [Suspect]
     Active Substance: ABALOPARATIDE
     Route: 058
     Dates: start: 2025

REACTIONS (9)
  - Intentional dose omission [Unknown]
  - Neck pain [Recovered/Resolved]
  - Spinal pain [Recovered/Resolved]
  - Intentional product misuse [Unknown]
  - Heart rate increased [Unknown]
  - Pain [Unknown]
  - Chest pain [Unknown]
  - Arthralgia [Unknown]
  - Back pain [Recovered/Resolved]

NARRATIVE: CASE EVENT DATE: 20250101
